FAERS Safety Report 11291617 (Version 1)
Quarter: 2015Q3

REPORT INFORMATION
  Report Type: Spontaneous
  Country: US (occurrence: US)
  Receive Date: 20150722
  Receipt Date: 20150722
  Transmission Date: 20151125
  Serious: No
  Sender: FDA-Public Use
  Company Number: US-PFIZER INC-2015229863

PATIENT
  Age: 84 Year
  Sex: Female

DRUGS (1)
  1. ATORVASTATIN CALCIUM. [Suspect]
     Active Substance: ATORVASTATIN CALCIUM
     Dosage: 40 MG, UNK

REACTIONS (5)
  - Malaise [Unknown]
  - Muscle spasms [Unknown]
  - Pain [Unknown]
  - Dyspepsia [Unknown]
  - Nausea [Unknown]
